FAERS Safety Report 8557574-9 (Version None)
Quarter: 2012Q3

REPORT INFORMATION
  Report Type: 
  Country: None (occurrence: None)
  Receive Date: 20120801
  Receipt Date: 20120718
  Transmission Date: 20120928
  Serious: Yes (Hospitalization, Other)
  Sender: FDA-Public Use
  Company Number: DK-WATSON-2012-13205

PATIENT
  Age: 72 Year
  Sex: Female

DRUGS (1)
  1. METFORMIN HYDROCHLORIDE [Suspect]
     Indication: DIABETES MELLITUS
     Dosage: 2 G, DAILY
     Route: 065

REACTIONS (3)
  - SEPSIS [None]
  - LACTIC ACIDOSIS [None]
  - ANURIA [None]
